FAERS Safety Report 8684943 (Version 4)
Quarter: 2014Q1

REPORT INFORMATION
  Report Type: Report from Study
  Country: JP (occurrence: JP)
  Receive Date: 20120726
  Receipt Date: 20140207
  Transmission Date: 20141002
  Serious: Yes (Life-Threatening, Hospitalization)
  Sender: FDA-Public Use
  Company Number: JP-009507513-1207JPN008161

PATIENT
  Age: 84 Year
  Sex: Female

DRUGS (10)
  1. ZOLINZA CAPSULES 100MG [Suspect]
     Indication: PERIPHERAL T-CELL LYMPHOMA UNSPECIFIED
     Dosage: 400 MG, QD
     Route: 048
     Dates: start: 20120411, end: 20120413
  2. ZOLINZA CAPSULES 100MG [Suspect]
     Dosage: 300 MG, QD
     Route: 048
     Dates: start: 20120509, end: 20120509
  3. NORVASC [Concomitant]
     Indication: HYPERTENSION
     Dosage: 5 MG, QD
     Route: 048
  4. GASTER D [Concomitant]
     Indication: GASTRIC ULCER
     Dosage: 20 MG, BID
     Route: 048
  5. MAGMITT [Concomitant]
     Indication: GASTRIC ULCER
     Dosage: 330 MG, TID
     Route: 048
  6. PURSENNID (SENNOSIDES) [Concomitant]
     Indication: CONSTIPATION
     Dosage: 48 MG, QD
     Route: 048
  7. MYSLEE [Concomitant]
     Indication: INSOMNIA
     Dosage: 2.5 MG, QD
     Route: 048
  8. PREDONINE [Concomitant]
     Indication: PERIPHERAL T-CELL LYMPHOMA UNSPECIFIED
     Dosage: 10 MG, QD
     Route: 048
  9. DIFLUCAN [Concomitant]
     Indication: PERIPHERAL T-CELL LYMPHOMA UNSPECIFIED
     Dosage: 100 MG, QD
     Route: 048
  10. LASIX (FUROSEMIDE) [Concomitant]
     Indication: HYPERTENSION
     Dosage: 20 MG, QD
     Route: 048

REACTIONS (9)
  - Altered state of consciousness [Recovering/Resolving]
  - Pyrexia [Recovering/Resolving]
  - Oxygen saturation decreased [Recovered/Resolved]
  - Urine output decreased [Recovered/Resolved]
  - Renal disorder [Recovered/Resolved]
  - Altered state of consciousness [Recovered/Resolved]
  - Oxygen saturation decreased [Recovered/Resolved]
  - Urine output decreased [Recovered/Resolved]
  - Renal disorder [Recovered/Resolved]
